FAERS Safety Report 4652539-1 (Version None)
Quarter: 2005Q2

REPORT INFORMATION
  Report Type: 
  Country: None (occurrence: None)
  Receive Date: 20050502
  Receipt Date: 20050414
  Transmission Date: 20051028
  Serious: Yes (Life-Threatening, Other)
  Sender: FDA-Public Use
  Company Number: GB-2005-001132

PATIENT
  Age: 50 Year
  Sex: Female
  Weight: 61 kg

DRUGS (2)
  1. MIRENA [Suspect]
     Dosage: 20 UG/DAY, CONT, INTRA-UTERINE
     Route: 015
     Dates: start: 20031028
  2. TRANEXAMIC ACID (TRANEXAMIC ACID) [Concomitant]

REACTIONS (3)
  - ASCITES [None]
  - ENDOMETRIAL CANCER [None]
  - MENORRHAGIA [None]
